FAERS Safety Report 8272700-7 (Version None)
Quarter: 2012Q2

REPORT INFORMATION
  Report Type: 
  Country: None (occurrence: None)
  Receive Date: 20120411
  Receipt Date: 20120323
  Transmission Date: 20120825
  Serious: Yes (Other)
  Sender: FDA-Public Use
  Company Number: US-BAXTER-2012BAX001222

PATIENT

DRUGS (5)
  1. RITUXIMAB [Suspect]
     Route: 064
  2. CYCLOPHOSPHAMIDE [Suspect]
     Route: 064
  3. DOXORUBICIN HCL [Suspect]
     Route: 064
  4. VINCRISTINE [Suspect]
     Route: 064
  5. PREDNISONE TAB [Suspect]
     Route: 064

REACTIONS (2)
  - MICROCEPHALY [None]
  - FOETAL EXPOSURE DURING PREGNANCY [None]
